FAERS Safety Report 8426948-9 (Version None)
Quarter: 2012Q2

REPORT INFORMATION
  Report Type: 
  Country: None (occurrence: None)
  Receive Date: 20120611
  Receipt Date: 20120606
  Transmission Date: 20120825
  Serious: Yes (Death)
  Sender: FDA-Public Use
  Company Number: DE-ROCHE-1070999

PATIENT
  Age: 75 Year
  Sex: Female
  Weight: 48 kg

DRUGS (3)
  1. AVASTIN [Suspect]
     Indication: OVARIAN CANCER
     Route: 042
     Dates: start: 20120327
  2. CARBOPLATIN [Suspect]
     Indication: OVARIAN CANCER
     Dosage: 260 AUCS
     Route: 042
     Dates: start: 20120327
  3. PACLITAXEL [Suspect]
     Indication: OVARIAN CANCER
     Route: 042
     Dates: start: 20120327

REACTIONS (1)
  - DEATH [None]
